FAERS Safety Report 10343898 (Version 1)
Quarter: 2014Q3

REPORT INFORMATION
  Report Type: Spontaneous
  Country: US (occurrence: US)
  Receive Date: 20140727
  Receipt Date: 20140727
  Transmission Date: 20150326
  Serious: No
  Sender: FDA-Public Use
  Company Number: US-009507513-1407USA007463

PATIENT
  Age: 28 Year
  Sex: Female
  Weight: 145.13 kg

DRUGS (1)
  1. IMPLANON [Suspect]
     Active Substance: ETONOGESTREL
     Indication: CONTRACEPTION
     Dosage: DOSE/FREQUENCY: EVERY 3 YEARS, 1 ROD
     Dates: start: 20130420

REACTIONS (7)
  - Hypoaesthesia [Unknown]
  - Influenza [Unknown]
  - Mood swings [Unknown]
  - Menstruation irregular [Unknown]
  - Amenorrhoea [Unknown]
  - Breast tenderness [Unknown]
  - Menorrhagia [Unknown]

NARRATIVE: CASE EVENT DATE: 20130420
